FAERS Safety Report 15370579 (Version 1)
Quarter: 2018Q3

REPORT INFORMATION
  Report Type: Spontaneous
  Country: PL (occurrence: PL)
  Receive Date: 20180911
  Receipt Date: 20180911
  Transmission Date: 20181010
  Serious: Yes (Death, Hospitalization, Other)
  Sender: FDA-Public Use
  Company Number: PL-APOTEX-2018AP020422

PATIENT
  Age: 29 Year
  Sex: Male

DRUGS (1)
  1. IMATINIB [Suspect]
     Active Substance: IMATINIB
     Indication: HYPEREOSINOPHILIC SYNDROME
     Dosage: UNK
     Route: 065

REACTIONS (3)
  - Cardiotoxicity [Fatal]
  - Cardiac failure [Fatal]
  - Disease progression [Fatal]
